FAERS Safety Report 9690015 (Version 1)
Quarter: 2013Q4

REPORT INFORMATION
  Report Type: Spontaneous
  Country: US (occurrence: US)
  Receive Date: 20131115
  Receipt Date: 20131115
  Transmission Date: 20140711
  Serious: No
  Sender: FDA-Public Use
  Company Number: US-009507513-1311USA004809

PATIENT
  Age: 76 Year
  Sex: Female

DRUGS (2)
  1. SINGULAIR [Suspect]
     Dosage: 10 MG, QD
  2. SINEMET [Suspect]
     Dosage: 20/100 MG TABLET, Q3H

REACTIONS (5)
  - Upper limb fracture [Unknown]
  - Fall [Unknown]
  - Hypertension [Unknown]
  - Diabetes mellitus [Unknown]
  - Drug dose omission [Unknown]
